FAERS Safety Report 15990007 (Version 1)
Quarter: 2019Q1

REPORT INFORMATION
  Report Type: Spontaneous
  Country: US (occurrence: US)
  Receive Date: 20190125
  Receipt Date: 20190125
  Transmission Date: 20190418
  Serious: No
  Sender: FDA-Public Use
  Company Number: None

PATIENT
  Age: 67 Year
  Sex: Male

DRUGS (4)
  1. NIFEDIPINE. [Concomitant]
     Active Substance: NIFEDIPINE
  2. LOSARTAN. [Concomitant]
     Active Substance: LOSARTAN
  3. ZITHROMYCIN [Concomitant]
     Active Substance: AZITHROMYCIN ANHYDROUS
  4. MAVYRET [Suspect]
     Active Substance: GLECAPREVIR\PIBRENTASVIR
     Dates: start: 20190103

REACTIONS (1)
  - Sinusitis [None]

NARRATIVE: CASE EVENT DATE: 20190122
